FAERS Safety Report 6082539-9 (Version None)
Quarter: 2009Q1

REPORT INFORMATION
  Report Type: 
  Country: None (occurrence: None)
  Receive Date: 20090202
  Receipt Date: 20070830
  Transmission Date: 20090719
  Serious: Yes (Other)
  Sender: FDA-Public Use
  Company Number: 267023

PATIENT
  Sex: Male

DRUGS (3)
  1. NOVOLOG [Suspect]
     Indication: TYPE 1 DIABETES MELLITUS
     Dosage: 21 IU, SINGLE, SUBCUTANEOUS ; 5-9 IU, TID, SUBCUTANEOUS
     Route: 058
     Dates: start: 20070601, end: 20070601
  2. NOVOLOG [Suspect]
     Indication: TYPE 1 DIABETES MELLITUS
     Dosage: 21 IU, SINGLE, SUBCUTANEOUS ; 5-9 IU, TID, SUBCUTANEOUS
     Route: 058
     Dates: start: 20020101
  3. LANTUS [Concomitant]

REACTIONS (3)
  - BLOOD GLUCOSE DECREASED [None]
  - INCOHERENT [None]
  - WRONG DRUG ADMINISTERED [None]
